FAERS Safety Report 23869056 (Version 2)
Quarter: 2024Q2

REPORT INFORMATION
  Report Type: Report from Study
  Country: BR (occurrence: BR)
  Receive Date: 20240517
  Receipt Date: 20240603
  Transmission Date: 20240715
  Serious: Yes (Life-Threatening, Hospitalization)
  Sender: FDA-Public Use
  Company Number: BR-JNJFOC-20240268754

PATIENT
  Age: 49 Year
  Sex: Male
  Weight: 120 kg

DRUGS (3)
  1. STELARA [Suspect]
     Active Substance: USTEKINUMAB
     Indication: Psoriasis
     Route: 058
     Dates: start: 20231216
  2. STELARA [Suspect]
     Active Substance: USTEKINUMAB
     Route: 058
     Dates: start: 20240216
  3. ACITRETIN [Concomitant]
     Active Substance: ACITRETIN

REACTIONS (3)
  - Cerebrovascular accident [Recovering/Resolving]
  - Cough [Unknown]
  - Memory impairment [Unknown]

NARRATIVE: CASE EVENT DATE: 20240216
